FAERS Safety Report 9252982 (Version 1)
Quarter: 2013Q2

REPORT INFORMATION
  Report Type: Spontaneous
  Country: FR (occurrence: FR)
  Receive Date: 20130424
  Receipt Date: 20130424
  Transmission Date: 20140414
  Serious: Yes (Other)
  Sender: FDA-Public Use
  Company Number: FR-ABBOTT-12P-056-0945691-00

PATIENT
  Age: 32 Year
  Sex: Female
  Weight: 94 kg

DRUGS (1)
  1. HUMIRA [Suspect]
     Indication: PSORIASIS
     Dates: start: 201101

REACTIONS (1)
  - Abortion induced [Unknown]
